FAERS Safety Report 5706101-X (Version None)
Quarter: 2008Q2

REPORT INFORMATION
  Report Type: 
  Country: None (occurrence: None)
  Receive Date: 20080415
  Receipt Date: 20080404
  Transmission Date: 20081010
  Serious: Yes (Life-Threatening, Hospitalization)
  Sender: FDA-Public Use
  Company Number: CH-PFIZER INC-2008026144

PATIENT
  Age: 16 Year
  Sex: Male

DRUGS (12)
  1. PROSTIN VR SOLUTION, STERILE [Suspect]
     Indication: LIVER TRANSPLANT
     Dosage: FREQ:DAILY; EVERY DAY
     Route: 042
     Dates: start: 20080124, end: 20080127
  2. SIMULECT [Suspect]
     Indication: LIVER TRANSPLANT
     Dates: start: 20080124, end: 20080124
  3. SIMULECT [Suspect]
     Dates: start: 20080128, end: 20080128
  4. VANCOMYCIN [Suspect]
     Route: 042
  5. ROCEPHIN [Concomitant]
     Route: 042
     Dates: start: 20080124, end: 20080124
  6. METRONIDAZOLE HCL [Concomitant]
     Route: 042
  7. MERONEM [Concomitant]
     Route: 042
  8. DIFLUCAN [Concomitant]
     Dates: start: 20080125, end: 20080131
  9. CYMEVENE [Concomitant]
  10. DOBUTAMINE HCL [Concomitant]
     Route: 042
     Dates: start: 20080124, end: 20080203
  11. NORADRENALINE [Concomitant]
     Route: 042
     Dates: start: 20080124, end: 20080203
  12. APRICAL [Concomitant]
     Dates: start: 20080128, end: 20080128

REACTIONS (7)
  - ACUTE RESPIRATORY DISTRESS SYNDROME [None]
  - HAEMODIALYSIS [None]
  - HAEMODYNAMIC INSTABILITY [None]
  - LIVER TRANSPLANT REJECTION [None]
  - PLEURAL EFFUSION [None]
  - PYREXIA [None]
  - SYSTEMIC INFLAMMATORY RESPONSE SYNDROME [None]
